FAERS Safety Report 10741980 (Version 1)
Quarter: 2015Q1

REPORT INFORMATION
  Report Type: Spontaneous
  Country: US (occurrence: US)
  Receive Date: 20150127
  Receipt Date: 20150127
  Transmission Date: 20150721
  Serious: Yes (Other)
  Sender: FDA-Public Use
  Company Number: US-PFIZER INC-2015030813

PATIENT
  Age: 2 Decade
  Sex: Female

DRUGS (1)
  1. ZITHROMAX [Suspect]
     Active Substance: AZITHROMYCIN DIHYDRATE
     Indication: PNEUMONIA MYCOPLASMAL
     Dosage: 500 MG FOR 1 DAY, THEN 250 MG DAILY FOR 4 DAYS AND THEN 500 MG DAILY FOR FIVE DAYS

REACTIONS (2)
  - Therapeutic response unexpected [Unknown]
  - Autoimmune disorder [Not Recovered/Not Resolved]
